FAERS Safety Report 9380407 (Version 1)
Quarter: 2013Q2

REPORT INFORMATION
  Report Type: Spontaneous
  Country: US (occurrence: None)
  Receive Date: 20130628
  Receipt Date: 20130628
  Transmission Date: 20140414
  Serious: Yes (Life-Threatening)
  Sender: FDA-Public Use
  Company Number: 1749401

PATIENT
  Age: 59 Year
  Sex: Male

DRUGS (4)
  1. DEXMEDETOMIDINE HYDROCHLORIDE [Suspect]
     Indication: SEDATION
  2. DEXMEDETOMIDINE HYDROCHLORIDE [Suspect]
     Indication: AGITATION
  3. HALOPERIDOL [Suspect]
     Dosage: 5 MG X 3 DOSES
     Route: 042
  4. FENTANYL [Concomitant]

REACTIONS (6)
  - Ventricular fibrillation [None]
  - Cardiac arrest [None]
  - Ventricular tachycardia [None]
  - Ventricular extrasystoles [None]
  - Cardiotoxicity [None]
  - Drug interaction [None]
